FAERS Safety Report 4300750-1 (Version None)
Quarter: 2004Q1

REPORT INFORMATION
  Report Type: 
  Country: None (occurrence: None)
  Receive Date: 20040220
  Receipt Date: 20040220
  Transmission Date: 20041129
  Serious: No
  Sender: FDA-Public Use
  Company Number: None

PATIENT
  Age: 43 Year
  Sex: Female
  Weight: 58.4 kg

DRUGS (2)
  1. GAMMAR-P I.V. [Suspect]
     Indication: BONE MARROW TRANSPLANT
     Dosage: 20 GM QW CONT. INFUSION
     Dates: start: 20040216
  2. GAMMAR-P I.V. [Suspect]
     Indication: NON-HODGKIN'S LYMPHOMA
     Dosage: 20 GM QW CONT. INFUSION
     Dates: start: 20040216

REACTIONS (2)
  - CHEST PAIN [None]
  - DYSPNOEA [None]
